FAERS Safety Report 17387051 (Version 1)
Quarter: 2020Q1

REPORT INFORMATION
  Report Type: Spontaneous
  Country: NL (occurrence: NL)
  Receive Date: 20200206
  Receipt Date: 20200206
  Transmission Date: 20200409
  Serious: Yes (Other)
  Sender: FDA-Public Use
  Company Number: NL-JNJFOC-20200200990

PATIENT
  Age: 16 Year
  Sex: Male
  Weight: 71 kg

DRUGS (1)
  1. CONCERTA [Suspect]
     Active Substance: METHYLPHENIDATE HYDROCHLORIDE
     Indication: ATTENTION DEFICIT/HYPERACTIVITY DISORDER
     Dosage: TABLET, 5 MG (MILLIGRAM), 1 KEER PER DAG, 0,5
     Route: 065
     Dates: start: 20191212, end: 20191217

REACTIONS (6)
  - Epistaxis [Recovered/Resolved]
  - Off label use [Unknown]
  - Headache [Recovered/Resolved]
  - Product use issue [Unknown]
  - Arrhythmia [Recovered/Resolved]
  - Dizziness [Recovered/Resolved]

NARRATIVE: CASE EVENT DATE: 20191212
